FAERS Safety Report 22385284 (Version 1)
Quarter: 2023Q2

REPORT INFORMATION
  Report Type: Spontaneous
  Country: MX (occurrence: MX)
  Receive Date: 20230530
  Receipt Date: 20230530
  Transmission Date: 20230721
  Serious: Yes (Other)
  Sender: FDA-Public Use
  Company Number: MX-TAKEDA-2023TUS051327

PATIENT
  Sex: Female
  Weight: 50 kg

DRUGS (6)
  1. PIOGLITAZONE [Suspect]
     Active Substance: PIOGLITAZONE
     Indication: COVID-19
     Dosage: 1 IN THE MORNING AND ANOTHER IN THE AFTERNOON
     Route: 048
  2. EMPAGLIFLOZIN [Concomitant]
     Active Substance: EMPAGLIFLOZIN
     Indication: Diabetes mellitus
     Dosage: UNK
  3. ATHOS B [Concomitant]
     Indication: Cough
     Dosage: UNK
  4. ELIQUIS [Concomitant]
     Active Substance: APIXABAN
     Indication: Anticoagulant therapy
     Dosage: UNK
  5. BREDELIN [Concomitant]
     Indication: Antibiotic therapy
     Dosage: UNK
  6. NEBIVOLOL HYDROCHLORIDE [Concomitant]
     Active Substance: NEBIVOLOL HYDROCHLORIDE
     Indication: Blood pressure measurement
     Dosage: UNK

REACTIONS (1)
  - COVID-19 [Recovered/Resolved]
